FAERS Safety Report 9743090 (Version 3)
Quarter: 2015Q2

REPORT INFORMATION
  Report Type: Report from Study
  Country: US (occurrence: US)
  Receive Date: 20131210
  Receipt Date: 20150420
  Transmission Date: 20150821
  Serious: Yes (Hospitalization)
  Sender: FDA-Public Use
  Company Number: US-ACTELION-A-US2013-92312

PATIENT
  Age: 64 Year
  Sex: Female

DRUGS (2)
  1. VENTAVIS [Suspect]
     Active Substance: ILOPROST
     Indication: PULMONARY HYPERTENSION
     Dosage: 5 MCG, 4-6X/DAILY
     Route: 055
     Dates: start: 20120209
  2. VENTAVIS [Suspect]
     Active Substance: ILOPROST
     Dosage: 5 MCG, 4-9X/DAILY
     Route: 055

REACTIONS (4)
  - Vaginal haemorrhage [Unknown]
  - Uterine dilation and curettage [Unknown]
  - Cardiac failure congestive [Unknown]
  - Endometrial hyperplasia [Unknown]
